FAERS Safety Report 11425090 (Version 1)
Quarter: 2015Q3

REPORT INFORMATION
  Report Type: Spontaneous
  Country: GB (occurrence: GB)
  Receive Date: 20150827
  Receipt Date: 20150827
  Transmission Date: 20151125
  Serious: Yes (Death)
  Sender: FDA-Public Use
  Company Number: GB-FRESENIUS KABI-FK201504096

PATIENT

DRUGS (5)
  1. MESNA. [Concomitant]
     Active Substance: MESNA
     Indication: CHEMOTHERAPY UROTHELIAL TOXICITY ATTENUATION
     Route: 048
  2. THIAMINE. [Concomitant]
     Active Substance: THIAMINE
     Indication: ENCEPHALOPATHY
  3. IFOSFAMIDE (MANUFACTURER UNKNOWN) [Suspect]
     Active Substance: IFOSFAMIDE
     Indication: SOFT TISSUE SARCOMA
     Route: 042
  4. SODIUM BICARBONATE. [Concomitant]
     Active Substance: SODIUM BICARBONATE
     Indication: URINE ALKALINISATION THERAPY
     Route: 048
  5. METOCLOPRAMIDE. [Concomitant]
     Active Substance: METOCLOPRAMIDE
     Indication: NAUSEA

REACTIONS (1)
  - Neutropenic sepsis [Fatal]
